FAERS Safety Report 6931521-5 (Version None)
Quarter: 2010Q3

REPORT INFORMATION
  Report Type: 
  Country: None (occurrence: None)
  Receive Date: 20100812
  Receipt Date: 20090924
  Transmission Date: 20110219
  Serious: Yes (Other)
  Sender: FDA-Public Use
  Company Number: 2009SP027074

PATIENT
  Age: 55 Year
  Sex: Male

DRUGS (1)
  1. REMERON [Suspect]
     Indication: PRODUCT USED FOR UNKNOWN INDICATION
     Dosage: 45 MG;QD;PO
     Dates: start: 20090501

REACTIONS (3)
  - DECREASED APPETITE [None]
  - SKIN DISCOLOURATION [None]
  - WEIGHT DECREASED [None]
